FAERS Safety Report 15797024 (Version 1)
Quarter: 2019Q1

REPORT INFORMATION
  Report Type: Spontaneous
  Country: US (occurrence: US)
  Receive Date: 20190107
  Receipt Date: 20190107
  Transmission Date: 20190417
  Serious: Yes (Life-Threatening, Disabling, Other)
  Sender: FDA-Public Use
  Company Number: None

PATIENT
  Age: 80 Year
  Sex: Male
  Weight: 90 kg

DRUGS (9)
  1. VALSARTAN 160MG TABLETS X 2 TIME DAILY [Suspect]
     Active Substance: VALSARTAN
     Indication: HYPERTENSION
     Dosage: ?          QUANTITY:1 TABLET(S);?
     Route: 048
     Dates: start: 20160202, end: 20190107
  2. MEMANTINE. [Concomitant]
     Active Substance: MEMANTINE
  3. XARELTO [Concomitant]
     Active Substance: RIVAROXABAN
  4. GAS-X [Concomitant]
     Active Substance: DIMETHICONE
  5. AMLODIPINE BESYLATE. [Concomitant]
     Active Substance: AMLODIPINE BESYLATE
  6. ARICEPT [Concomitant]
     Active Substance: DONEPEZIL HYDROCHLORIDE
  7. VALSARTIN [Concomitant]
     Active Substance: VALSARTAN
  8. LEVETIRACETAM. [Concomitant]
     Active Substance: LEVETIRACETAM
  9. CYMBALTA [Concomitant]
     Active Substance: DULOXETINE HYDROCHLORIDE

REACTIONS (2)
  - Neoplasm malignant [None]
  - Prostate cancer [None]

NARRATIVE: CASE EVENT DATE: 20170101
